FAERS Safety Report 16432409 (Version 1)
Quarter: 2019Q3

REPORT INFORMATION
  Report Type: Spontaneous
  Country: US (occurrence: US)
  Receive Date: 20190614
  Receipt Date: 20190614
  Transmission Date: 20191004
  Serious: No
  Sender: FDA-Public Use
  Company Number: None

PATIENT
  Age: 71 Year
  Sex: Male

DRUGS (2)
  1. DUPIXENT [Suspect]
     Active Substance: DUPILUMAB
     Indication: SEASONAL ALLERGY
     Dosage: ?          OTHER FREQUENCY:EVERY 2 WEEKS;?
     Route: 058
     Dates: start: 20190419, end: 20190614
  2. MONTELUKAST [Concomitant]
     Active Substance: MONTELUKAST SODIUM
     Dates: start: 20190405

REACTIONS (2)
  - Eye swelling [None]
  - Ocular hyperaemia [None]

NARRATIVE: CASE EVENT DATE: 20190614
